FAERS Safety Report 9376316 (Version 1)
Quarter: 2013Q3

REPORT INFORMATION
  Report Type: Spontaneous
  Country: FR (occurrence: FR)
  Receive Date: 20130701
  Receipt Date: 20130701
  Transmission Date: 20140515
  Serious: Yes (Hospitalization, Congenital Anomaly)
  Sender: FDA-Public Use
  Company Number: PHHY2013FR065758

PATIENT
  Sex: Male
  Weight: 2.96 kg

DRUGS (2)
  1. NICARDIPINE [Suspect]
     Indication: HYPERTENSION
     Route: 064
  2. LABETALOL [Suspect]
     Route: 064

REACTIONS (3)
  - Transposition of the great vessels [Recovered/Resolved]
  - Cyanosis central [Recovered/Resolved]
  - Foetal exposure during pregnancy [Unknown]
